FAERS Safety Report 13407878 (Version 1)
Quarter: 2017Q2

REPORT INFORMATION
  Report Type: Spontaneous
  Country: HU (occurrence: HU)
  Receive Date: 20170406
  Receipt Date: 20170406
  Transmission Date: 20170830
  Serious: Yes (Death)
  Sender: FDA-Public Use
  Company Number: HU-ROCHE-1916493

PATIENT
  Age: 47 Year
  Sex: Female

DRUGS (3)
  1. SOBYCOR [Concomitant]
     Route: 065
  2. ACTILYSE [Suspect]
     Active Substance: ALTEPLASE
     Indication: ISCHAEMIC STROKE
     Route: 065
     Dates: start: 20170308, end: 20170308
  3. TRITACE [Concomitant]
     Active Substance: RAMIPRIL
     Route: 065

REACTIONS (1)
  - Haemorrhagic transformation stroke [Fatal]

NARRATIVE: CASE EVENT DATE: 20170308
